FAERS Safety Report 5959837-X (Version None)
Quarter: 2008Q4

REPORT INFORMATION
  Report Type: 
  Country: None (occurrence: None)
  Receive Date: 20081120
  Receipt Date: 20081117
  Transmission Date: 20090506
  Serious: Yes (Life-Threatening)
  Sender: FDA-Public Use
  Company Number: B0543385A

PATIENT
  Age: 75 Year
  Sex: Female

DRUGS (6)
  1. ZANTAC [Suspect]
     Indication: PREMEDICATION
     Dosage: 50MG PER DAY
     Dates: start: 20081016, end: 20081016
  2. DECADRON [Suspect]
     Indication: PREMEDICATION
     Dosage: 10MG PER DAY
     Route: 065
     Dates: start: 20081016, end: 20081016
  3. RESTAMIN [Concomitant]
     Indication: PREMEDICATION
     Dosage: 50MG PER DAY
     Route: 048
  4. CELESTONE [Concomitant]
     Indication: PREMEDICATION
     Route: 042
     Dates: start: 20081009, end: 20081009
  5. TAXOL [Concomitant]
     Indication: OVARIAN CANCER
     Dosage: 70MG PER DAY
     Route: 042
  6. PARAPLATIN [Concomitant]
     Indication: OVARIAN CANCER
     Dosage: 130MG PER DAY
     Route: 042

REACTIONS (9)
  - ABDOMINAL DISCOMFORT [None]
  - ALTERED STATE OF CONSCIOUSNESS [None]
  - BLOOD PRESSURE DECREASED [None]
  - DEHYDRATION [None]
  - HYPOPNOEA [None]
  - INTERSTITIAL LUNG DISEASE [None]
  - SEPSIS [None]
  - SHOCK [None]
  - TACHYCARDIA [None]
